FAERS Safety Report 23932979 (Version 1)
Quarter: 2024Q2

REPORT INFORMATION
  Report Type: Spontaneous
  Country: US (occurrence: US)
  Receive Date: 20240603
  Receipt Date: 20240603
  Transmission Date: 20240716
  Serious: Yes (Hospitalization, Other)
  Sender: FDA-Public Use
  Company Number: US-OTSUKA-2024_015318

PATIENT
  Age: 34 Year
  Sex: Male

DRUGS (2)
  1. ABILIFY MAINTENA [Suspect]
     Active Substance: ARIPIPRAZOLE
     Indication: Product used for unknown indication
     Dosage: 300 MG
     Route: 065
  2. ABILIFY MAINTENA [Suspect]
     Active Substance: ARIPIPRAZOLE
     Dosage: 400 MG, EVERY 4 WEEKS
     Route: 065
     Dates: start: 20220804

REACTIONS (6)
  - Multiple organ dysfunction syndrome [Recovered/Resolved]
  - Gastrointestinal haemorrhage [Recovered/Resolved]
  - Acute kidney injury [Recovered/Resolved]
  - Cerebrovascular accident [Recovered/Resolved]
  - Diabetic ketoacidosis [Recovered/Resolved]
  - Product dose omission issue [Unknown]

NARRATIVE: CASE EVENT DATE: 20240312
